FAERS Safety Report 6436906-1 (Version None)
Quarter: 2009Q4

REPORT INFORMATION
  Report Type: 
  Country: None (occurrence: None)
  Receive Date: 20091109
  Receipt Date: 20091026
  Transmission Date: 20100525
  Serious: Yes (Other)
  Sender: FDA-Public Use
  Company Number: MC200900393

PATIENT
  Sex: Female

DRUGS (1)
  1. CLEVIPREX [Suspect]
     Indication: BLOOD PRESSURE MANAGEMENT

REACTIONS (1)
  - OXYGEN SATURATION DECREASED [None]
